FAERS Safety Report 9760104 (Version 1)
Quarter: 2013Q4

REPORT INFORMATION
  Report Type: Spontaneous
  Country: US (occurrence: US)
  Receive Date: 20131216
  Receipt Date: 20131216
  Transmission Date: 20140711
  Serious: No
  Sender: FDA-Public Use
  Company Number: US-BIOGENIDEC-2013BI101609

PATIENT
  Age: 66 Year
  Sex: Female

DRUGS (13)
  1. TECFIDERA [Suspect]
     Indication: MULTIPLE SCLEROSIS
     Route: 048
     Dates: start: 201309
  2. CLONAZEPAM [Concomitant]
  3. BUPROPION HCL XL [Concomitant]
  4. CYCLOBENZAPRINE [Concomitant]
  5. VITAMIN D3 [Concomitant]
  6. WELCHOL [Concomitant]
  7. TRAMADOL HCL [Concomitant]
  8. ZOCOR [Concomitant]
  9. CELEXA [Concomitant]
  10. NEURONTIN [Concomitant]
  11. PREVACID [Concomitant]
  12. VITAMIN B-12 [Concomitant]
  13. COUMADIN [Concomitant]

REACTIONS (1)
  - Flushing [Unknown]
